FAERS Safety Report 7837706-8 (Version None)
Quarter: 2011Q4

REPORT INFORMATION
  Report Type: 
  Country: None (occurrence: None)
  Receive Date: 20111024
  Receipt Date: 20111017
  Transmission Date: 20120403
  Serious: Yes (Hospitalization)
  Sender: FDA-Public Use
  Company Number: US-CELGENEUS-163-20785-11092451

PATIENT
  Sex: Female

DRUGS (11)
  1. RITUXAN [Concomitant]
     Route: 065
  2. TRAZODONE HCL [Concomitant]
     Route: 065
  3. THALOMID [Suspect]
     Dosage: 50 MILLIGRAM
     Route: 048
     Dates: start: 20110701
  4. SINGULAIR [Concomitant]
     Route: 065
  5. XYLOCAINE [Concomitant]
     Route: 065
  6. THALOMID [Suspect]
     Dosage: 100 MILLIGRAM
     Route: 048
     Dates: start: 20110801
  7. ZOFRAN [Concomitant]
     Route: 065
  8. THALOMID [Suspect]
     Dosage: 100 MILLIGRAM
     Route: 048
     Dates: start: 20110627
  9. SPIRONOLACTONE [Concomitant]
     Route: 065
  10. RESTASIS [Concomitant]
     Route: 065
  11. REMERON [Concomitant]
     Route: 065

REACTIONS (2)
  - INFECTION [None]
  - GRAFT VERSUS HOST DISEASE [None]
